FAERS Safety Report 21923784 (Version 1)
Quarter: 2023Q1

REPORT INFORMATION
  Report Type: Spontaneous
  Country: FR (occurrence: FR)
  Receive Date: 20230130
  Receipt Date: 20230130
  Transmission Date: 20230417
  Serious: Yes (Other)
  Sender: FDA-Public Use
  Company Number: FR-AFSSAPS-LL20223685

PATIENT
  Age: 60 Year
  Sex: Female
  Weight: 50 kg

DRUGS (3)
  1. OXALIPLATIN [Suspect]
     Active Substance: OXALIPLATIN
     Indication: Adenocarcinoma gastric
     Dosage: 130 MILLIGRAM
     Route: 040
     Dates: start: 20220920
  2. DOCETAXEL ANHYDROUS [Suspect]
     Active Substance: DOCETAXEL ANHYDROUS
     Indication: Adenocarcinoma gastric
     Dosage: 70 MILLIGRAM
     Route: 040
     Dates: start: 20220920
  3. FLUOROURACIL [Suspect]
     Active Substance: FLUOROURACIL
     Indication: Adenocarcinoma gastric
     Dosage: 3900 MILLIGRAM
     Route: 040
     Dates: start: 20220920

REACTIONS (1)
  - Status epilepticus [Recovered/Resolved]

NARRATIVE: CASE EVENT DATE: 20220921
